FAERS Safety Report 11875308 (Version 1)
Quarter: 2015Q4

REPORT INFORMATION
  Report Type: Report from Study
  Country: US (occurrence: US)
  Receive Date: 20151229
  Receipt Date: 20151229
  Transmission Date: 20160305
  Serious: Yes (Hospitalization)
  Sender: FDA-Public Use
  Company Number: US-BAYER-2015-452444

PATIENT
  Age: 61 Year
  Sex: Female

DRUGS (2)
  1. STIVARGA [Suspect]
     Active Substance: REGORAFENIB
     Indication: COLON CANCER
     Dosage: 80 MG, QD(DAILY)
     Route: 048
     Dates: start: 20151021
  2. STIVARGA [Suspect]
     Active Substance: REGORAFENIB
     Indication: RECTAL CANCER

REACTIONS (4)
  - Hospitalisation [None]
  - Hypoaesthesia [None]
  - Paraesthesia [None]
  - Palmar-plantar erythrodysaesthesia syndrome [Recovered/Resolved]
